FAERS Safety Report 22249235 (Version 1)
Quarter: 2023Q2

REPORT INFORMATION
  Report Type: Spontaneous
  Country: US (occurrence: None)
  Receive Date: 20230421
  Receipt Date: 20230421
  Transmission Date: 20230721
  Serious: No
  Sender: FDA-Public Use
  Company Number: None

PATIENT
  Age: 67 Year
  Sex: Male
  Weight: 80.1 kg

DRUGS (10)
  1. LENALIDOMIDE [Suspect]
     Active Substance: LENALIDOMIDE
     Indication: Non-Hodgkin^s lymphoma
     Dosage: FREQUENCY : DAILY;?
     Route: 048
     Dates: start: 202303
  2. ACETAMINOPHEN [Concomitant]
     Active Substance: ACETAMINOPHEN
  3. ASPIRIN [Concomitant]
     Active Substance: ASPIRIN
  4. AMLODIPINE [Concomitant]
     Active Substance: AMLODIPINE BESYLATE
  5. HUMALOG [Concomitant]
     Active Substance: INSULIN LISPRO
  6. HYDROCORTISONE [Concomitant]
     Active Substance: HYDROCORTISONE
  7. LISINOPRIL [Concomitant]
     Active Substance: LISINOPRIL
  8. REVLIMID [Concomitant]
     Active Substance: LENALIDOMIDE
  9. TAMSULOSIN [Concomitant]
     Active Substance: TAMSULOSIN
  10. WELLBUTRIN SR [Concomitant]
     Active Substance: BUPROPION HYDROCHLORIDE

REACTIONS (1)
  - Hospice care [None]
